FAERS Safety Report 10345396 (Version 1)
Quarter: 2014Q3

REPORT INFORMATION
  Report Type: Spontaneous
  Country: FR (occurrence: FR)
  Receive Date: 20140728
  Receipt Date: 20140728
  Transmission Date: 20150326
  Serious: Yes (Hospitalization)
  Sender: FDA-Public Use
  Company Number: FR-SA-2014SA097210

PATIENT
  Age: 74 Year
  Sex: Male

DRUGS (19)
  1. CARDENSIEL [Concomitant]
     Active Substance: BISOPROLOL FUMARATE
  2. CORTANCYL [Concomitant]
     Active Substance: PREDNISONE
  3. COUMADIN [Concomitant]
     Active Substance: WARFARIN SODIUM
  4. CRESTOR [Concomitant]
     Active Substance: ROSUVASTATIN CALCIUM
  5. PIPERACILLIN/TAZOBACTAM [Suspect]
     Active Substance: PIPERACILLIN SODIUM\TAZOBACTAM SODIUM
     Indication: ARTHRITIS BACTERIAL
     Route: 042
     Dates: start: 20140527, end: 20140617
  6. VANCOMYCIN MYLAN [Suspect]
     Active Substance: VANCOMYCIN
     Indication: ARTHRITIS BACTERIAL
     Route: 042
     Dates: start: 20140527
  7. LINEZOLID. [Concomitant]
     Active Substance: LINEZOLID
     Dates: start: 20140617
  8. SEROPLEX [Concomitant]
     Active Substance: ESCITALOPRAM OXALATE
  9. VANCOMYCIN MYLAN [Suspect]
     Active Substance: VANCOMYCIN
     Indication: ARTHRITIS BACTERIAL
     Route: 042
     Dates: start: 20140530, end: 20140610
  10. TEICOPLANIN [Concomitant]
     Active Substance: TEICOPLANIN
     Dates: start: 20140610, end: 20140617
  11. DOLIPRANE [Concomitant]
     Active Substance: ACETAMINOPHEN
  12. LOVENOX [Suspect]
     Active Substance: ENOXAPARIN SODIUM
     Indication: ANTICOAGULANT THERAPY
     Route: 058
     Dates: start: 20140528, end: 20140606
  13. LYRICA [Suspect]
     Active Substance: PREGABALIN
     Indication: PAIN
     Dosage: DOSE: 75 MG / DAY TO 27/5 AND 150 MG / D
     Route: 048
     Dates: start: 20140526, end: 20140528
  14. GENTAMICIN [Suspect]
     Active Substance: GENTAMICIN
     Indication: ARTHRITIS BACTERIAL
     Route: 042
     Dates: start: 20140527, end: 20140528
  15. KARDEGIC [Concomitant]
     Active Substance: ASPIRIN LYSINE
     Dates: end: 201305
  16. ZOLOFT [Concomitant]
     Active Substance: SERTRALINE HYDROCHLORIDE
  17. LASIX [Concomitant]
     Active Substance: FUROSEMIDE
  18. ROPIVACAINE [Suspect]
     Active Substance: ROPIVACAINE
     Indication: PAIN
     Route: 042
     Dates: start: 20140527, end: 20140528
  19. OFLOXACIN. [Concomitant]
     Active Substance: OFLOXACIN
     Dates: start: 20140617

REACTIONS (6)
  - Histiocytosis haematophagic [Not Recovered/Not Resolved]
  - Erythema [Not Recovered/Not Resolved]
  - Thrombocytopenia [Not Recovered/Not Resolved]
  - Serum ferritin increased [Not Recovered/Not Resolved]
  - Anaemia [Not Recovered/Not Resolved]
  - Drug reaction with eosinophilia and systemic symptoms [Not Recovered/Not Resolved]

NARRATIVE: CASE EVENT DATE: 20140610
